FAERS Safety Report 9903242 (Version 2)
Quarter: 2014Q1

REPORT INFORMATION
  Report Type: Spontaneous
  Country: US (occurrence: US)
  Receive Date: 20140217
  Receipt Date: 20140217
  Transmission Date: 20141002
  Serious: No
  Sender: FDA-Public Use
  Company Number: US-GILEAD-2011-0046430

PATIENT
  Age: 68 Year
  Sex: Female

DRUGS (1)
  1. LETAIRIS [Suspect]
     Indication: PRODUCT USED FOR UNKNOWN INDICATION
     Dosage: 5 MG, UNK
     Route: 048
     Dates: start: 20111020, end: 20111111

REACTIONS (6)
  - Pyrexia [Unknown]
  - Hypotension [Unknown]
  - Sinus disorder [Unknown]
  - Dry mouth [Unknown]
  - Unevaluable event [Unknown]
  - Oedema [Unknown]
